FAERS Safety Report 8710776 (Version 2)
Quarter: 2012Q4

REPORT INFORMATION
  Report Type: 
  Country: IT (occurrence: IT)
  Receive Date: 20120807
  Receipt Date: 20120904
  Transmission Date: 20130627
  Serious: Yes (Life-Threatening, Hospitalization)
  Sender: FDA-Public Use
  Company Number: PHHY2012IT067038

PATIENT
  Age: 73 Year
  Sex: Female

DRUGS (6)
  1. COMBISARTAN [Suspect]
     Indication: HYPERTENSION
     Route: 048
     Dates: start: 20110101, end: 20120707
  2. DEPAKIN [Suspect]
     Indication: EPILEPSY
     Dosage: 750 mg, daily
     Route: 048
     Dates: start: 20120101
  3. DEPAKIN [Suspect]
     Dosage: 500 mg , daily
     Route: 048
  4. KEPRA [Concomitant]
     Indication: EPILEPSY
     Dosage: 1500 mg, UNK
     Route: 048
  5. CARDIOASPIRIN [Concomitant]
  6. EFFERALGAN [Concomitant]
     Indication: PYREXIA

REACTIONS (3)
  - Hyponatraemia [Recovering/Resolving]
  - Epilepsy [Recovering/Resolving]
  - Anticonvulsant drug level increased [Unknown]
